FAERS Safety Report 18764708 (Version 4)
Quarter: 2021Q3

REPORT INFORMATION
  Report Type: Report from Study
  Country: US (occurrence: US)
  Receive Date: 20210120
  Receipt Date: 20210828
  Transmission Date: 20211014
  Serious: No
  Sender: FDA-Public Use
  Company Number: NVSC2021US007578

PATIENT
  Sex: Male

DRUGS (1)
  1. ENTRESTO [Suspect]
     Active Substance: SACUBITRIL\VALSARTAN
     Indication: PRODUCT USED FOR UNKNOWN INDICATION
     Dosage: UNK UNK, BID
     Route: 048
     Dates: start: 202009

REACTIONS (5)
  - Poor quality sleep [Unknown]
  - Lethargy [Unknown]
  - Bundle branch block left [Not Recovered/Not Resolved]
  - Sleep apnoea syndrome [Unknown]
  - Fear [Unknown]
